FAERS Safety Report 15315842 (Version 1)
Quarter: 2018Q3

REPORT INFORMATION
  Report Type: Spontaneous
  Country: FR (occurrence: FR)
  Receive Date: 20180824
  Receipt Date: 20180824
  Transmission Date: 20181010
  Serious: Yes (Hospitalization)
  Sender: FDA-Public Use
  Company Number: PHHY2018FR075036

PATIENT
  Age: 28 Year
  Sex: Male
  Weight: 72 kg

DRUGS (11)
  1. LOXAPAC [Suspect]
     Active Substance: LOXAPINE
     Indication: PSYCHOTIC DISORDER
     Dosage: 140 GTT, QD
     Route: 048
     Dates: start: 2016
  2. LAMICTAL [Concomitant]
     Active Substance: LAMOTRIGINE
     Indication: EPILEPSY
     Dosage: 400 MG, QD (2?0?2)
     Route: 048
     Dates: start: 2007
  3. CETIRIZINE HYDROCHLORIDE. [Concomitant]
     Active Substance: CETIRIZINE HYDROCHLORIDE
     Indication: HYPERSENSITIVITY
     Dosage: 10 MG, QD (1?0?0)
     Route: 048
     Dates: start: 2016
  4. LOXAPAC [Suspect]
     Active Substance: LOXAPINE
     Dosage: 140 GTT, QD
     Route: 048
     Dates: start: 20180307
  5. RISPERIDONE. [Suspect]
     Active Substance: RISPERIDONE
     Indication: PSYCHOTIC DISORDER
     Dosage: 6 MG, QD (1?1?1)
     Route: 048
     Dates: start: 2007
  6. RISPERIDONE. [Suspect]
     Active Substance: RISPERIDONE
     Dosage: 6 MG, QD (1?1?1)
     Route: 048
     Dates: start: 20180307
  7. ATARAX [Concomitant]
     Active Substance: HYDROXYZINE HYDROCHLORIDE
     Indication: INSOMNIA
     Dosage: 75 MG, QD
     Route: 048
     Dates: start: 2015
  8. PULMODEXANE [Concomitant]
     Active Substance: DEXTROMETHORPHAN HYDROBROMIDE
     Indication: PRODUCT USED FOR UNKNOWN INDICATION
     Dosage: 210 MG, QD (2?3?2)
     Route: 048
     Dates: start: 2007
  9. CIRCADIN [Concomitant]
     Active Substance: MELATONIN
     Indication: INSOMNIA
     Dosage: 2 MG, QD
     Route: 048
     Dates: start: 2016
  10. TRANXENE [Concomitant]
     Active Substance: CLORAZEPATE DIPOTASSIUM
     Indication: ANXIETY
     Dosage: 40 MG, QD
     Route: 048
     Dates: start: 2016
  11. VALIUM [Concomitant]
     Active Substance: DIAZEPAM
     Indication: EPILEPSY
     Dosage: 40 MG, QD (10 MG : 1X4 JOUR)
     Route: 048
     Dates: start: 2015

REACTIONS (1)
  - Colitis ischaemic [Not Recovered/Not Resolved]

NARRATIVE: CASE EVENT DATE: 20180307
